FAERS Safety Report 15899965 (Version 1)
Quarter: 2019Q1

REPORT INFORMATION
  Report Type: Spontaneous
  Country: US (occurrence: US)
  Receive Date: 20190201
  Receipt Date: 20190201
  Transmission Date: 20190417
  Serious: No
  Sender: FDA-Public Use
  Company Number: US-FDC LIMITED-2018RIS00602

PATIENT
  Sex: Male

DRUGS (2)
  1. LATANOPROST. [Suspect]
     Active Substance: LATANOPROST
     Dosage: 2 GTT, 1X/DAY (DOSED AS 1 DROP IN EACH EYE AT NIGHT)
     Route: 047
  2. TIMOLOL. [Concomitant]
     Active Substance: TIMOLOL
     Dosage: IN THE MORNING

REACTIONS (1)
  - Eye irritation [Recovered/Resolved]
